FAERS Safety Report 20020211 (Version 6)
Quarter: 2022Q4

REPORT INFORMATION
  Report Type: Spontaneous
  Country: GB (occurrence: GB)
  Receive Date: 20211101
  Receipt Date: 20221020
  Transmission Date: 20230112
  Serious: Yes (Hospitalization, Other)
  Sender: FDA-Public Use
  Company Number: None

PATIENT
  Sex: Female

DRUGS (9)
  1. AMLODIPINE BESYLATE [Suspect]
     Active Substance: AMLODIPINE BESYLATE
     Dosage: 5 MG
     Dates: start: 20210902
  2. DALTEPARIN SODIUM [Suspect]
     Active Substance: DALTEPARIN SODIUM
     Dosage: 5000 UNITS IN 0.2ML PRE-FILLED SYRINGE
     Dates: start: 20210901
  3. GENTAMICIN SULFATE [Suspect]
     Active Substance: GENTAMICIN SULFATE
     Dosage: 80MG IN 2ML INJECTION (200MG)
     Dates: start: 20210902
  4. PIPERACILLIN SODIUM\TAZOBACTAM SODIUM [Suspect]
     Active Substance: PIPERACILLIN SODIUM\TAZOBACTAM SODIUM
     Dosage: 2.25 G INJECTION (4500 MG)
     Dates: start: 20210901
  5. PIPERACILLIN SODIUM\TAZOBACTAM SODIUM [Suspect]
     Active Substance: PIPERACILLIN SODIUM\TAZOBACTAM SODIUM
     Dosage: 2.25 G INJECTION (4500 MG)
     Dates: start: 20210902
  6. FUROSEMIDE [Suspect]
     Active Substance: FUROSEMIDE
     Dosage: 20MG IN 2ML INJECTION(40 MG)
     Dates: start: 20210901
  7. FUROSEMIDE [Suspect]
     Active Substance: FUROSEMIDE
     Dosage: 20MG IN 2ML INJECTION (40MG)
     Dates: start: 20210902
  8. OMEPRAZOLE [Suspect]
     Active Substance: OMEPRAZOLE
     Dosage: 20 MG
     Dates: start: 20210902
  9. ONDANSETRON [Suspect]
     Active Substance: ONDANSETRON
     Dosage: 4 MG IN 2ML INJECTION WITHIN  2 HOURS OF PIPERACILLIN WITH TAZOBACTAM

REACTIONS (7)
  - Illness [Unknown]
  - Abdominal pain upper [Unknown]
  - Body temperature increased [Unknown]
  - Hypotensive crisis [Unknown]
  - Electrocardiogram abnormal [Unknown]
  - Medication error [Unknown]
  - Circulatory collapse [Unknown]
